FAERS Safety Report 8906862 (Version 2)
Quarter: 2013Q1

REPORT INFORMATION
  Report Type: Spontaneous
  Country: US (occurrence: US)
  Receive Date: 20121114
  Receipt Date: 20130118
  Transmission Date: 20140127
  Serious: Yes (Death)
  Sender: FDA-Public Use
  Company Number: US-ELI_LILLY_AND_COMPANY-US201201006467

PATIENT
  Age: 84 Year
  Sex: Male
  Weight: 89.34 kg

DRUGS (13)
  1. FORTEO [Suspect]
     Indication: OSTEOPOROSIS
     Dosage: 20 UG, QD
     Dates: start: 20120301, end: 20120401
  2. FORTEO [Suspect]
     Dosage: 20 UG, QD
  3. FORTEO [Suspect]
     Dosage: 20 UG, QD
  4. PLAVIX [Concomitant]
  5. ASA [Concomitant]
  6. LEVOTHYROXINE [Concomitant]
     Dosage: UNK, QD
  7. CALCITROL [Concomitant]
     Dosage: UNK, QD
  8. OMEPRAZOLE [Concomitant]
     Dosage: UNK, QD
  9. CYCLOBENZAPRINE [Concomitant]
     Dosage: UNK, EACH EVENING
  10. ALLOPURINOL [Concomitant]
     Dosage: UNK, QD
  11. EXFORGE [Concomitant]
     Dosage: UNK, QD
  12. LASIX [Concomitant]
  13. TESTOSTERONE [Concomitant]
     Dosage: UNK, MONTHLY (1/M)

REACTIONS (7)
  - Cardiac arrest [Fatal]
  - Myocardial infarction [Fatal]
  - Oedema peripheral [Not Recovered/Not Resolved]
  - Musculoskeletal pain [Unknown]
  - Fear [Unknown]
  - Constipation [Recovered/Resolved]
  - Arthralgia [Not Recovered/Not Resolved]
